FAERS Safety Report 9049650 (Version 2)
Quarter: 2013Q4

REPORT INFORMATION
  Report Type: Spontaneous
  Country: GB (occurrence: GB)
  Receive Date: 20130205
  Receipt Date: 20131008
  Transmission Date: 20140711
  Serious: Yes (Disabling)
  Sender: FDA-Public Use
  Company Number: GB-WATSON-2013-01543

PATIENT
  Age: 42 Year
  Sex: Male

DRUGS (9)
  1. METRONIDAZOLE (UNKNOWN) [Suspect]
     Indication: PILONIDAL CYST
     Dosage: 400 MG, TID
     Route: 048
     Dates: start: 20130108, end: 20130109
  2. CIPROFLOXACIN HYDROCHLORIDE (UNKNOWN) [Suspect]
     Indication: PILONIDAL CYST
     Dosage: 500 MG, SINGLE
     Route: 048
     Dates: start: 20130108, end: 20130108
  3. ERYTHROMYCIN [Concomitant]
     Indication: PILONIDAL CYST
     Dosage: 500 MG, QID
     Route: 048
     Dates: start: 20121220, end: 20121227
  4. CO-CODAMOL [Concomitant]
     Indication: PAIN
     Dosage: 2 DF, QID
     Route: 048
     Dates: start: 20130108
  5. MORPHINE SULPHATE [Concomitant]
     Indication: PAIN
     Dosage: 10 MG, UNKNOWN 10MG/1ML SOLUTION
     Route: 040
     Dates: start: 20130109, end: 20130109
  6. MORPHINE SULPHATE [Concomitant]
     Dosage: 20 MG, UNKNOWN (10MG/5ML ORAL SOLUTION)
     Route: 048
     Dates: start: 20130109, end: 20130109
  7. TRAMADOL [Concomitant]
     Indication: PAIN
     Dosage: 100 MG, UNKNOWN
     Route: 048
     Dates: start: 20130109, end: 20130109
  8. PARACETAMOL [Concomitant]
     Indication: PRODUCT USED FOR UNKNOWN INDICATION
     Dosage: 1 G, UNKNOWN
     Route: 048
     Dates: start: 20130109, end: 20130109
  9. IBUPROFEN [Concomitant]
     Indication: PAIN
     Dosage: 400 MG, UNKNOWN
     Route: 048
     Dates: start: 20130109, end: 201301

REACTIONS (2)
  - Deafness bilateral [Recovered/Resolved]
  - Vertigo [Not Recovered/Not Resolved]
